FAERS Safety Report 8848364 (Version 1)
Quarter: 2012Q4

REPORT INFORMATION
  Report Type: 
  Country: US (occurrence: US)
  Receive Date: 20121018
  Receipt Date: 20121018
  Transmission Date: 20130627
  Serious: No
  Sender: FDA-Public Use
  Company Number: US-TEVA-365277USA

PATIENT
  Age: 46 Year
  Sex: Female
  Weight: 113.5 kg

DRUGS (4)
  1. PLAN B ONE-STEP [Suspect]
     Indication: POST COITAL CONTRACEPTION
     Dosage: 1.5 Milligram Daily;
     Route: 048
     Dates: start: 20121014, end: 20121014
  2. LISINOPRIL [Concomitant]
     Indication: HYPERTENSION
  3. ADVAIR [Concomitant]
     Indication: ASTHMA
  4. PREDNISONE [Concomitant]
     Indication: INFLAMMATION

REACTIONS (4)
  - Hypertension [Not Recovered/Not Resolved]
  - Vomiting [Not Recovered/Not Resolved]
  - Dizziness [Not Recovered/Not Resolved]
  - Fatigue [Not Recovered/Not Resolved]
